FAERS Safety Report 16625791 (Version 2)
Quarter: 2020Q4

REPORT INFORMATION
  Report Type: Spontaneous
  Country: HU (occurrence: HU)
  Receive Date: 20190724
  Receipt Date: 20201023
  Transmission Date: 20210113
  Serious: Yes (Death, Life-Threatening, Hospitalization, Other)
  Sender: FDA-Public Use
  Company Number: HU-GLAXOSMITHKLINE-HU2019132335

PATIENT
  Age: 78 Year
  Sex: Male

DRUGS (25)
  1. CEFUROXIM [Suspect]
     Active Substance: CEFUROXIME
     Indication: INFLAMMATION
     Dosage: 4.5 G, QD (1.5 G, TID )
     Route: 042
  2. AMOXICILLIN SODIUM + CLAVULANIC ACID [Suspect]
     Active Substance: AMOXICILLIN\CLAVULANIC ACID
     Indication: PROPHYLAXIS
  3. METRONIDAZOLE. [Suspect]
     Active Substance: METRONIDAZOLE
     Indication: CLOSTRIDIUM DIFFICILE INFECTION
  4. CEFTAZIDIME. [Suspect]
     Active Substance: CEFTAZIDIME
     Indication: ENTEROBACTER INFECTION
     Dosage: 6 G, QD (2 G, TID)
     Route: 042
  5. GENTAMYCIN [Suspect]
     Active Substance: GENTAMICIN
     Indication: ENTEROBACTER INFECTION
  6. IMIPENEM AND CILASTATIN SODIUM [Suspect]
     Active Substance: CILASTATIN SODIUM\IMIPENEM
     Indication: RENAL IMPAIRMENT
     Dosage: 1000 MG, QD (500 MG, BID )
     Route: 042
  7. METRONIDAZOLE. [Suspect]
     Active Substance: METRONIDAZOLE
     Indication: INFLAMMATION
     Dosage: 300 ML, QD (100 ML, TID )
     Route: 042
  8. METRONIDAZOLE. [Suspect]
     Active Substance: METRONIDAZOLE
     Indication: PROPHYLAXIS
  9. IMIPENEM AND CILASTATIN SODIUM [Suspect]
     Active Substance: CILASTATIN SODIUM\IMIPENEM
     Indication: ENTEROCOCCAL INFECTION
     Dosage: 2000 MG, QD (500 MG, QID )
     Route: 042
  10. AMOXICILLIN SODIUM + CLAVULANIC ACID [Suspect]
     Active Substance: AMOXICILLIN\CLAVULANIC ACID
     Indication: INFLAMMATION
     Dosage: 3.6 G, QD (1.2 G, TID)
     Route: 042
  11. CEFTAZIDIME. [Suspect]
     Active Substance: CEFTAZIDIME
     Indication: PSEUDOMONAS INFECTION
  12. PIPERACILLIN AND TAZOBACTAM [Suspect]
     Active Substance: PIPERACILLIN SODIUM\TAZOBACTAM SODIUM
     Indication: ANTIBIOTIC THERAPY
     Dosage: 18 G, QD (4.5 G, QID)
     Route: 042
  13. CEFTAZIDIME. [Suspect]
     Active Substance: CEFTAZIDIME
     Indication: ENTEROBACTER INFECTION
  14. MEROPENEM. [Suspect]
     Active Substance: MEROPENEM
     Indication: PNEUMONIA KLEBSIELLA
     Dosage: 1 G, BID
     Route: 042
  15. FIDAXOMICIN [Suspect]
     Active Substance: FIDAXOMICIN
     Indication: CLOSTRIDIUM DIFFICILE INFECTION
     Dosage: 400 MG, QD (200 MG, BID)
     Route: 065
  16. ASCORBIC ACID. [Concomitant]
     Active Substance: ASCORBIC ACID
     Indication: PRODUCT USED FOR UNKNOWN INDICATION
     Dosage: UNK
     Route: 065
  17. CEFUROXIM [Suspect]
     Active Substance: CEFUROXIME
     Indication: ESCHERICHIA INFECTION
  18. AVIBACTAM SODIUM + CEFTAZIDIME [Suspect]
     Active Substance: AVIBACTAM SODIUM\CEFTAZIDIME
     Indication: PNEUMONIA KLEBSIELLA
  19. VANCOMYCIN [Suspect]
     Active Substance: VANCOMYCIN
     Indication: CLOSTRIDIUM DIFFICILE INFECTION
     Dosage: 500 MG, QD (125 MG, QID)
     Route: 048
  20. SULFAMETHOXAZOLE + TRIMETHOPRIM [Suspect]
     Active Substance: SULFAMETHOXAZOLE\TRIMETHOPRIM
     Indication: CITROBACTER INFECTION
     Dosage: UNK (400/80 MG)
     Route: 048
  21. GENTAMYCIN [Suspect]
     Active Substance: GENTAMICIN
     Indication: PSEUDOMONAS INFECTION
     Dosage: 160 MG, QD
     Route: 042
  22. AVIBACTAM SODIUM + CEFTAZIDIME [Suspect]
     Active Substance: AVIBACTAM SODIUM\CEFTAZIDIME
     Indication: SEPSIS
     Dosage: 7.5 G, QD (2.5 G, TID )
     Route: 042
     Dates: start: 20180707, end: 20180713
  23. FOSFOMYCIN [Suspect]
     Active Substance: FOSFOMYCIN
     Indication: PNEUMONIA KLEBSIELLA
     Dosage: 3 G, DAILY
     Route: 048
  24. BETADINE [Concomitant]
     Active Substance: POVIDONE-IODINE
     Indication: PRODUCT USED FOR UNKNOWN INDICATION
     Dosage: UNK
  25. METHENAMINE [Concomitant]
     Active Substance: METHENAMINE
     Indication: PRODUCT USED FOR UNKNOWN INDICATION
     Dosage: UNK
     Route: 065

REACTIONS (17)
  - Melaena [Unknown]
  - Hypoxia [Unknown]
  - Clostridium difficile infection [Not Recovered/Not Resolved]
  - Malaise [Unknown]
  - Pathogen resistance [Fatal]
  - Dyspnoea [Unknown]
  - Diarrhoea [Unknown]
  - Septic shock [Fatal]
  - Chest pain [Unknown]
  - Gastroenteritis [Unknown]
  - Product use in unapproved indication [Unknown]
  - Drug resistance [Unknown]
  - Sepsis [Fatal]
  - Chills [Unknown]
  - Pyrexia [Unknown]
  - Respiratory failure [Unknown]
  - Anaemia [Unknown]

NARRATIVE: CASE EVENT DATE: 20180718
